FAERS Safety Report 15762504 (Version 1)
Quarter: 2018Q4

REPORT INFORMATION
  Report Type: Spontaneous
  Country: FR (occurrence: FR)
  Receive Date: 20181226
  Receipt Date: 20181226
  Transmission Date: 20190205
  Serious: Yes (Other)
  Sender: FDA-Public Use
  Company Number: FR-MYLANLABS-2018M1095116

PATIENT
  Age: 85 Year
  Sex: Female
  Weight: 58.5 kg

DRUGS (3)
  1. LEVOFLOXACINE MYLAN 500 MG, COMPRIM? PELLICUL? S?CABLE [Suspect]
     Active Substance: LEVOFLOXACIN
     Indication: PNEUMOCOCCAL BACTERAEMIA
     Dosage: 2 DOSAGE FORM, QD
     Route: 048
     Dates: start: 20180309
  2. CLAMOXYL                           /00249603/ [Suspect]
     Active Substance: AMOXICILLIN
     Indication: PNEUMOCOCCAL BACTERAEMIA
     Dosage: 6 DOSAGE FORM, QD
     Route: 041
     Dates: start: 20180309, end: 20180406
  3. CLAMOXYL                           /00249602/ [Suspect]
     Active Substance: AMOXICILLIN
     Indication: PNEUMOCOCCAL BACTERAEMIA
     Dosage: 12 GRAM, QD
     Route: 048
     Dates: start: 20180407

REACTIONS (1)
  - Cholestasis [Recovered/Resolved]

NARRATIVE: CASE EVENT DATE: 20180410
